FAERS Safety Report 7793933-X (Version None)
Quarter: 2011Q4

REPORT INFORMATION
  Report Type: 
  Country: None (occurrence: None)
  Receive Date: 20111004
  Receipt Date: 20110919
  Transmission Date: 20120403
  Serious: No
  Sender: FDA-Public Use
  Company Number: US-BIOGENIDEC-2011BI033215

PATIENT
  Age: 61 Year
  Sex: Female

DRUGS (3)
  1. TYSABRI [Suspect]
     Indication: MULTIPLE SCLEROSIS
     Route: 042
     Dates: start: 20110729, end: 20110826
  2. TYSABRI [Suspect]
     Route: 042
     Dates: start: 20050221
  3. AVONEX [Concomitant]
     Indication: MULTIPLE SCLEROSIS
     Route: 030
     Dates: start: 20030115

REACTIONS (4)
  - INFUSION RELATED REACTION [None]
  - BLOOD GLUCOSE FLUCTUATION [None]
  - HYPERSENSITIVITY [None]
  - MALAISE [None]
